FAERS Safety Report 14332983 (Version 1)
Quarter: 2017Q4

REPORT INFORMATION
  Report Type: Spontaneous
  Country: IN (occurrence: IN)
  Receive Date: 20171228
  Receipt Date: 20171228
  Transmission Date: 20180321
  Serious: Yes (Other)
  Sender: FDA-Public Use
  Company Number: PHHY2017IN194531

PATIENT

DRUGS (2)
  1. SECUKINUMAB. [Suspect]
     Active Substance: SECUKINUMAB
     Dosage: 150 MG, EVERY 4 WEEKS
     Route: 058
  2. SECUKINUMAB. [Suspect]
     Active Substance: SECUKINUMAB
     Indication: PSORIATIC ARTHROPATHY
     Dosage: 150 MG, QW (AT 0,1,2,3,4 WEEKS)
     Route: 058

REACTIONS (1)
  - Depression [Unknown]
